FAERS Safety Report 6163491-4 (Version None)
Quarter: 2009Q2

REPORT INFORMATION
  Report Type: 
  Country: None (occurrence: None)
  Receive Date: 20090420
  Receipt Date: 20080320
  Transmission Date: 20091009
  Serious: Yes (Hospitalization)
  Sender: FDA-Public Use
  Company Number: SPV1-2008-00425

PATIENT
  Age: 23 Year
  Sex: Male
  Weight: 88 kg

DRUGS (2)
  1. 476 (MESALAZINE/MESALAMINE)(476 (MESALAZINE/MESALAMINE)) TABLET [Suspect]
     Indication: COLITIS ULCERATIVE
     Dosage: 4.8 G, 1X/DAY:QD, ORAL
     Route: 048
     Dates: start: 20070621, end: 20080222
  2. TRILISATE (CHOLINE SALICYLATE, MAGNESIUM SALICYLATE) [Concomitant]

REACTIONS (1)
  - PANCREATITIS [None]
